FAERS Safety Report 15905326 (Version 3)
Quarter: 2020Q1

REPORT INFORMATION
  Report Type: Report from Study
  Country: JP (occurrence: JP)
  Receive Date: 20190204
  Receipt Date: 20200116
  Transmission Date: 20200409
  Serious: Yes (Other)
  Sender: FDA-Public Use
  Company Number: PHJP2019JP001185

PATIENT
  Age: 54 Year
  Sex: Male

DRUGS (10)
  1. MICAMLO [Concomitant]
     Active Substance: AMLODIPINE BESYLATE\TELMISARTAN
     Indication: HYPERTENSION
     Dosage: 1 DF, UNK
     Route: 048
     Dates: start: 20181207
  2. SIGNIFOR LAR [Suspect]
     Active Substance: PASIREOTIDE PAMOATE
     Dosage: 40 MG, SINGLE ADMINISTRATION
     Route: 030
     Dates: start: 20180913
  3. SIGNIFOR LAR [Suspect]
     Active Substance: PASIREOTIDE PAMOATE
     Dosage: 60 MG, SINGLE ADMINISTRATION
     Route: 030
     Dates: start: 20190206
  4. SIGNIFOR LAR [Suspect]
     Active Substance: PASIREOTIDE PAMOATE
     Indication: ACROMEGALY
     Dosage: 40 MG, SINGLE ADMINISTRATION
     Route: 030
     Dates: start: 20180816
  5. SIGNIFOR LAR [Suspect]
     Active Substance: PASIREOTIDE PAMOATE
     Dosage: 40 MG, SINGLE ADMINISTRATION
     Route: 030
     Dates: start: 20181011
  6. SIGNIFOR LAR [Suspect]
     Active Substance: PASIREOTIDE PAMOATE
     Dosage: 60 MG, SINGLE ADMINISTRATION
     Route: 030
     Dates: start: 20190104
  7. SIGNIFOR LAR [Suspect]
     Active Substance: PASIREOTIDE PAMOATE
     Dosage: 60 MG, SINGLE ADMINISTRATION
     Route: 030
     Dates: start: 20181206
  8. TELMISARTAN. [Concomitant]
     Active Substance: TELMISARTAN
     Indication: HYPERTENSION
     Dosage: 40 MG, UNK
     Route: 048
     Dates: start: 20181201, end: 20181206
  9. SIGNIFOR LAR [Suspect]
     Active Substance: PASIREOTIDE PAMOATE
     Dosage: 60 MG, SINGLE ADMINISTRATION
     Route: 030
     Dates: start: 20181108
  10. SIGNIFOR LAR [Suspect]
     Active Substance: PASIREOTIDE PAMOATE
     Dosage: 60 MG, SINGLE ADMINISTRATION
     Route: 030
     Dates: start: 20190306

REACTIONS (2)
  - Therapeutic product effect incomplete [Unknown]
  - Diabetes mellitus [Recovered/Resolved]

NARRATIVE: CASE EVENT DATE: 20181115
